FAERS Safety Report 4700622-4 (Version None)
Quarter: 2005Q2

REPORT INFORMATION
  Report Type: 
  Country: None (occurrence: None)
  Receive Date: 20050627
  Receipt Date: 20050614
  Transmission Date: 20051028
  Serious: Yes (Hospitalization)
  Sender: FDA-Public Use
  Company Number: 2005089425

PATIENT
  Age: 71 Year
  Sex: Female

DRUGS (7)
  1. CELECOXIB (CELECOXIB) [Suspect]
     Indication: RHEUMATOID ARTHRITIS
     Dosage: 200 MG (100 MG, 2 IN 1 D), ORAL
     Route: 048
     Dates: start: 20041004, end: 20050110
  2. ROFECOXIB [Suspect]
     Indication: ILL-DEFINED DISORDER
     Dosage: 25 MG (25 MG, 1 IN 1 D), ORAL
     Route: 048
     Dates: start: 20030710, end: 20041004
  3. CLOPIDOGREL BISULFATE [Concomitant]
  4. LEVOTHYROXINE SODIUM [Concomitant]
  5. METHOTREXATE [Concomitant]
  6. FOLIC ACID [Concomitant]
  7. PREDNISONE [Concomitant]

REACTIONS (2)
  - HEMIANOPIA HOMONYMOUS [None]
  - PULMONARY EMBOLISM [None]
